FAERS Safety Report 12577610 (Version 2)
Quarter: 2017Q1

REPORT INFORMATION
  Report Type: Report from Study
  Country: US (occurrence: US)
  Receive Date: 20160720
  Receipt Date: 20170214
  Transmission Date: 20170428
  Serious: No
  Sender: FDA-Public Use
  Company Number: US-ASTRAZENECA-2015SF28795

PATIENT
  Sex: Male
  Weight: 80.7 kg

DRUGS (9)
  1. CRESTOR [Suspect]
     Active Substance: ROSUVASTATIN CALCIUM
     Route: 048
  2. METFORMIN [Concomitant]
     Active Substance: METFORMIN HYDROCHLORIDE
  3. ALLEGRA [Concomitant]
     Active Substance: FEXOFENADINE HYDROCHLORIDE
  4. ESTALIN [Concomitant]
  5. BRILINTA [Suspect]
     Active Substance: TICAGRELOR
     Indication: STENT PLACEMENT
     Route: 048
     Dates: start: 201512
  6. TRAVATAN [Concomitant]
     Active Substance: TRAVOPROST
  7. BRILINTA [Suspect]
     Active Substance: TICAGRELOR
     Indication: ACUTE CORONARY SYNDROME
     Route: 048
     Dates: start: 201512
  8. ASPIRIN. [Concomitant]
     Active Substance: ASPIRIN
  9. ISOSORBIDE. [Concomitant]
     Active Substance: ISOSORBIDE

REACTIONS (13)
  - Influenza [Unknown]
  - Mouth haemorrhage [Unknown]
  - Arthralgia [Unknown]
  - Platelet count decreased [Unknown]
  - Back pain [Unknown]
  - Contusion [Unknown]
  - Sinus disorder [Unknown]
  - Laryngitis [Unknown]
  - Tongue biting [Unknown]
  - Epistaxis [Unknown]
  - Cough [Unknown]
  - Urine output decreased [Unknown]
  - Sinus pain [Unknown]
